FAERS Safety Report 15752225 (Version 2)
Quarter: 2019Q1

REPORT INFORMATION
  Report Type: Spontaneous
  Country: US (occurrence: US)
  Receive Date: 20181221
  Receipt Date: 20190102
  Transmission Date: 20190417
  Serious: Yes (Hospitalization)
  Sender: FDA-Public Use
  Company Number: US-AVADEL LEGACY PHARMACEUTICALS, LLC-2018AVA00526

PATIENT
  Sex: Female

DRUGS (21)
  1. NOCTIVA [Suspect]
     Active Substance: DESMOPRESSIN ACETATE
     Indication: NOCTURIA
     Dosage: 1.66 ?G, 1X/DAY APPROXIMATELY 30 MINUTES BEFORE BEDTIME
     Route: 045
     Dates: start: 201809, end: 20181202
  2. NOCTIVA [Suspect]
     Active Substance: DESMOPRESSIN ACETATE
     Indication: NOCTURIA
     Dosage: UNK
     Dates: start: 20181203
  3. COLESTID [Concomitant]
     Active Substance: COLESTIPOL HYDROCHLORIDE
  4. ALBUTEROL. [Concomitant]
     Active Substance: ALBUTEROL
  5. LOSARTAN. [Concomitant]
     Active Substance: LOSARTAN
  6. MYRBETRIQ [Concomitant]
     Active Substance: MIRABEGRON
  7. TURMERIC [Concomitant]
     Active Substance: HERBALS\TURMERIC
  8. VITAMIN D [Concomitant]
     Active Substance: CHOLECALCIFEROL
  9. LATUDA [Concomitant]
     Active Substance: LURASIDONE HYDROCHLORIDE
  10. URSODIOL. [Concomitant]
     Active Substance: URSODIOL
  11. WELLBUTRIN [Concomitant]
     Active Substance: BUPROPION HYDROCHLORIDE
  12. PRILOSEC [Concomitant]
     Active Substance: OMEPRAZOLE MAGNESIUM
  13. ATENOLOL. [Concomitant]
     Active Substance: ATENOLOL
  14. ASPIRIN. [Concomitant]
     Active Substance: ASPIRIN
  15. BIOTIN [Concomitant]
     Active Substance: BIOTIN
  16. MELATONIN [Concomitant]
     Active Substance: MELATONIN
  17. ONDANSETRON [Concomitant]
     Active Substance: ONDANSETRON
  18. DULERA AER [Concomitant]
  19. REGLAN [Concomitant]
     Active Substance: METOCLOPRAMIDE HYDROCHLORIDE
  20. XALATAN [Concomitant]
     Active Substance: LATANOPROST
  21. CRESTOR [Concomitant]
     Active Substance: ROSUVASTATIN CALCIUM

REACTIONS (1)
  - Cellulitis [Unknown]
